FAERS Safety Report 7987470-7 (Version None)
Quarter: 2011Q4

REPORT INFORMATION
  Report Type: 
  Country: None (occurrence: None)
  Receive Date: 20111216
  Receipt Date: 20111205
  Transmission Date: 20120403
  Serious: Yes (Hospitalization, Other)
  Sender: FDA-Public Use
  Company Number: PHHY2011BR107088

PATIENT
  Sex: Male
  Weight: 64 kg

DRUGS (10)
  1. DIAMICRON [Concomitant]
     Indication: DIABETES MELLITUS
  2. METFORMIN HYDROCHLORIDE [Concomitant]
     Indication: DIABETES MELLITUS
  3. DIOVAN [Suspect]
     Indication: HYPERTENSION
     Dosage: 1 DF, DAILY
     Route: 048
  4. DIOVAN [Suspect]
     Dosage: 2 DF, DAILY
     Route: 048
  5. ACETYLSALICYLIC ACID SRT [Concomitant]
  6. SIMVASTATIN [Concomitant]
  7. AMLODIPINE BESYLATE [Suspect]
  8. ISOSORBIDE MONONITRATE [Concomitant]
  9. CLOPIDOGREL [Concomitant]
  10. AMIODARONE HYDROCHLORIDE [Concomitant]
     Dosage: 200 MG, UNK

REACTIONS (3)
  - DIABETES MELLITUS [None]
  - CARDIAC FAILURE [None]
  - PNEUMONIA [None]
